APPROVED DRUG PRODUCT: PROGESTERONE
Active Ingredient: PROGESTERONE
Strength: 100MG
Dosage Form/Route: CAPSULE;ORAL
Application: A211285 | Product #001 | TE Code: AB
Applicant: EUGIA PHARMA SPECIALITIES LTD
Approved: Oct 26, 2018 | RLD: No | RS: No | Type: RX